FAERS Safety Report 19116861 (Version 1)
Quarter: 2021Q2

REPORT INFORMATION
  Report Type: Spontaneous
  Country: CN (occurrence: CN)
  Receive Date: 20210409
  Receipt Date: 20210409
  Transmission Date: 20210717
  Serious: Yes (Hospitalization, Other)
  Sender: FDA-Public Use
  Company Number: CN-PFIZER INC-2021351212

PATIENT
  Age: 55 Year
  Sex: Male
  Weight: 60 kg

DRUGS (3)
  1. MEDROL [Suspect]
     Active Substance: METHYLPREDNISOLONE
     Indication: DEAFNESS NEUROSENSORY
     Dosage: 8 MG, 3X/DAY
     Route: 048
     Dates: start: 20210302, end: 20210317
  2. MECOBALAMIN [Concomitant]
     Active Substance: METHYLCOBALAMIN
     Indication: DEAFNESS NEUROSENSORY
     Dosage: 0.5 MG, 3X/DAY
     Route: 048
     Dates: start: 20210302, end: 20210317
  3. YIN XING YE [Concomitant]
     Indication: DEAFNESS NEUROSENSORY
     Dosage: 1 DF, 3X/DAY
     Route: 048
     Dates: start: 20210302, end: 20210317

REACTIONS (2)
  - Gastrointestinal haemorrhage [Recovering/Resolving]
  - Haematemesis [Recovering/Resolving]

NARRATIVE: CASE EVENT DATE: 20210317
